FAERS Safety Report 17284527 (Version 2)
Quarter: 2022Q1

REPORT INFORMATION
  Report Type: Spontaneous
  Country: FR (occurrence: FR)
  Receive Date: 20200117
  Receipt Date: 20220204
  Transmission Date: 20220423
  Serious: Yes (Hospitalization, Disabling, Other)
  Sender: FDA-Public Use
  Company Number: FR-MYLANLABS-2019M1118574

PATIENT
  Age: 38 Year
  Sex: Female

DRUGS (10)
  1. CYPROTERONE [Suspect]
     Active Substance: CYPROTERONE
     Indication: Hirsutism
     Dosage: UNK
     Dates: start: 2004, end: 2012
  2. CYPROTERONE [Suspect]
     Active Substance: CYPROTERONE
     Dosage: UNK
     Dates: start: 2013
  3. CYPROTERONE [Suspect]
     Active Substance: CYPROTERONE
     Dosage: 50 MILLIGRAM
     Dates: start: 20160806, end: 20161229
  4. CYPROTERONE [Suspect]
     Active Substance: CYPROTERONE
     Dosage: 50 MILLIGRAM
     Dates: start: 20160620
  5. CYPROTERONE [Suspect]
     Active Substance: CYPROTERONE
     Dosage: 50 MILLIGRAM, (UNTILL 24-NOV-2017)
     Dates: start: 20150619
  6. ESTRADIOL [Suspect]
     Active Substance: ESTRADIOL
     Indication: Product used for unknown indication
     Dosage: 1 MILLIGRAM
     Dates: start: 20160806, end: 20161229
  7. ESTRADIOL [Suspect]
     Active Substance: ESTRADIOL
     Dosage: 1 MILLIGRAM
     Dates: start: 20160620
  8. NOVORAPID [Suspect]
     Active Substance: INSULIN ASPART
     Indication: Product used for unknown indication
     Dosage: 100U/ML
     Dates: start: 20160806, end: 20161229
  9. LANTUS [Suspect]
     Active Substance: INSULIN GLARGINE
     Indication: Product used for unknown indication
     Dosage: 100UI/ML
     Dates: start: 20160806, end: 20161229
  10. INSULIN NOS [Concomitant]
     Active Substance: INSULIN NOS
     Indication: Diabetes mellitus
     Dosage: UNK

REACTIONS (1)
  - Meningioma [Unknown]

NARRATIVE: CASE EVENT DATE: 20171201
